FAERS Safety Report 15550474 (Version 1)
Quarter: 2018Q4

REPORT INFORMATION
  Report Type: Spontaneous
  Country: FR (occurrence: FR)
  Receive Date: 20181025
  Receipt Date: 20181025
  Transmission Date: 20190205
  Serious: Yes (Hospitalization)
  Sender: FDA-Public Use
  Company Number: FR-EMD SERONO-E2B_90062855

PATIENT
  Age: 34 Year
  Sex: Female

DRUGS (6)
  1. OVITRELLE [Suspect]
     Active Substance: CHORIOGONADOTROPIN ALFA
     Indication: OVULATION INDUCTION
     Route: 058
     Dates: start: 20180218, end: 20180218
  2. ORGALUTRAN [Concomitant]
     Active Substance: GANIRELIX ACETATE
     Indication: PRODUCT USED FOR UNKNOWN INDICATION
     Dosage: 0.25 MG/0.5 ML SOLUTION FOR INJECTION
     Route: 058
  3. DECAPEPTYL                         /00486501/ [Suspect]
     Active Substance: GONADORELIN
     Indication: CONTROLLED OVARIAN STIMULATION
     Dosage: POWDER AND SOLVENT FOR SOLUTION FOR INJECTION
     Route: 058
     Dates: start: 20180208, end: 20180217
  4. LUTENYL [Concomitant]
     Active Substance: NOMEGESTROL ACETATE
     Indication: PRODUCT USED FOR UNKNOWN INDICATION
     Route: 048
  5. LOVENOX [Concomitant]
     Active Substance: ENOXAPARIN SODIUM
     Indication: PRODUCT USED FOR UNKNOWN INDICATION
     Route: 058
  6. GONAL-F [Suspect]
     Active Substance: FOLLITROPIN
     Indication: CONTROLLED OVARIAN STIMULATION
     Route: 058
     Dates: start: 20180208, end: 20180216

REACTIONS (5)
  - Nausea [Recovered/Resolved]
  - Pelvic fluid collection [Recovered/Resolved]
  - Vomiting [Recovered/Resolved]
  - Pelvic pain [Recovered/Resolved]
  - Ovarian hyperstimulation syndrome [Recovered/Resolved]

NARRATIVE: CASE EVENT DATE: 20180224
